FAERS Safety Report 18843336 (Version 1)
Quarter: 2021Q1

REPORT INFORMATION
  Report Type: Spontaneous
  Country: RU (occurrence: RU)
  Receive Date: 20210203
  Receipt Date: 20210203
  Transmission Date: 20210419
  Serious: No
  Sender: FDA-Public Use
  Company Number: RU-EXELIXIS-CABO-20027878

PATIENT
  Age: 58 Year
  Sex: Male

DRUGS (1)
  1. CABOMETYX [Suspect]
     Active Substance: CABOZANTINIB S-MALATE
     Indication: RENAL CELL CARCINOMA
     Dosage: UNK
     Dates: start: 20190510

REACTIONS (7)
  - Weight decreased [Unknown]
  - Hair colour changes [Unknown]
  - Palmar-plantar erythrodysaesthesia syndrome [Unknown]
  - Stomatitis [Unknown]
  - Alopecia [Unknown]
  - Headache [Unknown]
  - Diarrhoea [Unknown]
